FAERS Safety Report 8421993-1 (Version None)
Quarter: 2012Q2

REPORT INFORMATION
  Report Type: 
  Country: None (occurrence: None)
  Receive Date: 20120323
  Receipt Date: 20110211
  Transmission Date: 20120825
  Serious: Yes (Hospitalization)
  Sender: FDA-Public Use
  Company Number: 163-21880-11021515

PATIENT
  Age: 69 Year
  Sex: Female
  Weight: 68.04 kg

DRUGS (9)
  1. NORVASC [Concomitant]
  2. ALPRAZOLAM [Concomitant]
  3. ASPIRIN [Concomitant]
  4. LIPITOR [Concomitant]
  5. CALCIUM CARBONATE [Concomitant]
  6. REVLIMID [Suspect]
     Indication: MULTIPLE MYELOMA
     Dosage: 15 MG, QOD, PO
     Route: 048
     Dates: start: 20110101
  7. NEXIUM [Concomitant]
  8. DECADRON [Concomitant]
  9. ARANESP [Concomitant]

REACTIONS (6)
  - NAUSEA [None]
  - URINE OUTPUT DECREASED [None]
  - GASTROOESOPHAGEAL REFLUX DISEASE [None]
  - CHEST PAIN [None]
  - DIARRHOEA [None]
  - VOMITING [None]
